FAERS Safety Report 13216506 (Version 1)
Quarter: 2017Q1

REPORT INFORMATION
  Report Type: Other
  Country: US (occurrence: US)
  Receive Date: 20170210
  Receipt Date: 20170210
  Transmission Date: 20170428
  Serious: Yes (Hospitalization)
  Sender: FDA-Public Use
  Company Number: US-ACORDA-ACO_124166_2016

PATIENT
  Age: 48 Year
  Sex: Female

DRUGS (1)
  1. AMPYRA [Suspect]
     Active Substance: DALFAMPRIDINE
     Indication: MULTIPLE SCLEROSIS
     Dosage: 10 MG, BID
     Route: 048
     Dates: start: 20141020

REACTIONS (7)
  - Red blood cell count decreased [Unknown]
  - Anion gap decreased [Unknown]
  - Haemoglobin decreased [Recovered/Resolved]
  - Blood urea decreased [Unknown]
  - Haematocrit decreased [Recovered/Resolved]
  - Small intestinal obstruction [Unknown]
  - Eosinophil count increased [Unknown]

NARRATIVE: CASE EVENT DATE: 20160415
